FAERS Safety Report 8095429-7 (Version None)
Quarter: 2012Q1

REPORT INFORMATION
  Report Type: 
  Country: None (occurrence: None)
  Receive Date: 20120129
  Receipt Date: 20111229
  Transmission Date: 20120608
  Serious: No
  Sender: FDA-Public Use
  Company Number: US-ABBOTT-11P-163-0887467-00

PATIENT
  Weight: 61.744 kg

DRUGS (1)
  1. HUMIRA [Suspect]
     Indication: CROHN'S DISEASE
     Dates: start: 20111001

REACTIONS (4)
  - ASTHENIA [None]
  - WEIGHT DECREASED [None]
  - DIARRHOEA [None]
  - DRUG INEFFECTIVE [None]
